APPROVED DRUG PRODUCT: ISRADIPINE
Active Ingredient: ISRADIPINE
Strength: 10MG
Dosage Form/Route: TABLET, EXTENDED RELEASE;ORAL
Application: A201067 | Product #002
Applicant: PHARMOBEDIENT CONSULTING LLC
Approved: Nov 27, 2015 | RLD: No | RS: No | Type: DISCN